FAERS Safety Report 5272993-4 (Version None)
Quarter: 2007Q1

REPORT INFORMATION
  Report Type: 
  Country: None (occurrence: None)
  Receive Date: 20070322
  Receipt Date: 20060815
  Transmission Date: 20070707
  Serious: Yes (Hospitalization, Other)
  Sender: FDA-Public Use
  Company Number: US-PFIZER INC-2007020679

PATIENT

DRUGS (1)
  1. FLAGYL [Suspect]

REACTIONS (3)
  - CRANIAL NERVE PALSIES MULTIPLE [None]
  - DIPLOPIA [None]
  - PARAESTHESIA [None]
